FAERS Safety Report 6143189-9 (Version None)
Quarter: 2009Q2

REPORT INFORMATION
  Report Type: 
  Country: None (occurrence: None)
  Receive Date: 20090403
  Receipt Date: 20040205
  Transmission Date: 20091009
  Serious: Yes (Hospitalization)
  Sender: FDA-Public Use
  Company Number: ES-ROCHE-358192

PATIENT
  Sex: Male
  Weight: 76.3 kg

DRUGS (49)
  1. DACLIZUMAB [Suspect]
     Dosage: 150MG
     Route: 042
     Dates: start: 20030514, end: 20030514
  2. DACLIZUMAB [Suspect]
     Route: 042
     Dates: start: 20030329
  3. DACLIZUMAB [Suspect]
     Route: 042
     Dates: start: 20030613
  4. DACLIZUMAB [Suspect]
     Route: 042
     Dates: start: 20030630
  5. DACLIZUMAB [Suspect]
     Dosage: 75MG
     Route: 042
     Dates: end: 20030715
  6. MYCOPHENOLATE MOFETIL [Suspect]
     Route: 048
     Dates: start: 20030514
  7. MYCOPHENOLATE MOFETIL [Suspect]
     Route: 048
     Dates: start: 20030515
  8. MYCOPHENOLATE MOFETIL [Suspect]
     Route: 048
     Dates: start: 20051014
  9. MYCOPHENOLATE MOFETIL [Suspect]
     Route: 048
     Dates: start: 20051125
  10. MYCOPHENOLATE MOFETIL [Suspect]
     Route: 048
     Dates: start: 20060127
  11. PROGRAF [Suspect]
     Route: 048
     Dates: start: 20030514
  12. PROGRAF [Suspect]
     Route: 048
     Dates: start: 20030516
  13. PROGRAF [Suspect]
     Route: 048
     Dates: start: 20030520
  14. PROGRAF [Suspect]
     Route: 048
     Dates: start: 20031219
  15. PROGRAF [Suspect]
     Route: 048
     Dates: start: 20051014
  16. PROGRAF [Suspect]
     Route: 048
     Dates: start: 20051125
  17. PROGRAF [Suspect]
     Route: 048
     Dates: start: 20030515
  18. PROGRAF [Suspect]
     Route: 048
     Dates: start: 20030523
  19. PROGRAF [Suspect]
     Route: 048
     Dates: start: 20030822
  20. PROGRAF [Suspect]
     Route: 048
     Dates: start: 20031110
  21. PROGRAF [Suspect]
     Route: 048
     Dates: start: 20031219
  22. PROGRAF [Suspect]
     Route: 048
     Dates: start: 20040517
  23. CORTICOSTEROIDS [Suspect]
     Route: 065
  24. CARVEDILOL [Concomitant]
     Route: 048
     Dates: start: 20030808
  25. CARVEDILOL [Concomitant]
     Route: 048
     Dates: start: 20031110
  26. CARVEDILOL [Concomitant]
     Route: 048
     Dates: start: 20031219
  27. CARVEDILOL [Concomitant]
     Route: 048
     Dates: start: 20040517
  28. ATORVASTATIN CALCIUM [Concomitant]
     Route: 048
     Dates: start: 20030715
  29. ATORVASTATIN CALCIUM [Concomitant]
     Route: 048
     Dates: start: 20030822
  30. AAS [Concomitant]
     Route: 048
     Dates: start: 20030527
  31. RANITIDINE [Concomitant]
     Route: 048
     Dates: start: 20030527
  32. ACYCLOVIR [Concomitant]
     Route: 048
     Dates: start: 20030528
  33. TRIMETOPRIM / SULFAMETOXAZOLE [Concomitant]
     Route: 048
     Dates: start: 20030527
  34. AMLODIPINE BESYLATE [Concomitant]
     Route: 048
     Dates: start: 20040517
  35. ASPIRIN [Concomitant]
     Route: 048
     Dates: start: 20030527
  36. AZITROMICINA [Concomitant]
     Route: 048
     Dates: start: 20031021, end: 20031029
  37. GANCICLOVIR [Concomitant]
     Route: 042
     Dates: start: 20030515
  38. GANCICLOVIR [Concomitant]
     Route: 042
     Dates: start: 20030516, end: 20030528
  39. METHYLPREDNISOLONE 4MG TAB [Concomitant]
     Route: 042
     Dates: start: 20030514
  40. METHYLPREDNISOLONE 4MG TAB [Concomitant]
     Route: 042
     Dates: start: 20030515, end: 20030518
  41. NYSTATIN [Concomitant]
     Route: 048
     Dates: start: 20030515
  42. NYSTATIN [Concomitant]
     Route: 048
     Dates: start: 20030520, end: 20030528
  43. PREDNISONE [Concomitant]
     Route: 048
     Dates: start: 20030518
  44. PREDNISONE [Concomitant]
     Route: 048
     Dates: start: 20030529
  45. PREDNISONE [Concomitant]
     Route: 048
     Dates: start: 20030711
  46. PREDNISONE [Concomitant]
     Route: 048
     Dates: start: 20031010
  47. PREDNISONE [Concomitant]
     Route: 048
     Dates: start: 20031110
  48. RAMIPRIL [Concomitant]
     Route: 048
     Dates: start: 20040120
  49. RAMIPRIL [Concomitant]
     Route: 048
     Dates: start: 20040517

REACTIONS (1)
  - TRANSIENT ISCHAEMIC ATTACK [None]
